FAERS Safety Report 17603634 (Version 1)
Quarter: 2020Q1

REPORT INFORMATION
  Report Type: Spontaneous
  Country: FR (occurrence: FR)
  Receive Date: 20200331
  Receipt Date: 20200331
  Transmission Date: 20200409
  Serious: Yes (Disabling)
  Sender: FDA-Public Use
  Company Number: FR-BAUSCH-BL-2020-008981

PATIENT
  Age: 72 Year
  Sex: Male
  Weight: 73 kg

DRUGS (2)
  1. GENTAMICINE [Suspect]
     Active Substance: GENTAMICIN
     Indication: STAPHYLOCOCCAL INFECTION
     Dosage: UNSPECIFIED
     Route: 041
     Dates: start: 20110302, end: 20110329
  2. ORBENINE [Suspect]
     Active Substance: CLOXACILLIN SODIUM
     Indication: STAPHYLOCOCCAL INFECTION
     Dosage: UNSPECIFIED
     Route: 041
     Dates: start: 20110304, end: 20110422

REACTIONS (2)
  - Vestibular disorder [Recovered/Resolved with Sequelae]
  - Condition aggravated [Unknown]

NARRATIVE: CASE EVENT DATE: 2011
